FAERS Safety Report 4474425-2 (Version None)
Quarter: 2004Q4

REPORT INFORMATION
  Report Type: 
  Country: None (occurrence: None)
  Receive Date: 20041014
  Receipt Date: 20041004
  Transmission Date: 20050328
  Serious: Yes (Disabling)
  Sender: FDA-Public Use
  Company Number: JP-JNJFOC-20040805239

PATIENT
  Age: 83 Year
  Sex: Male

DRUGS (2)
  1. LEVOFLOXACIN [Suspect]
     Indication: BRONCHITIS
     Route: 049
     Dates: start: 20040626, end: 20040630
  2. WARFARIN SODIUM [Concomitant]
     Dosage: 1/2 DOSE
     Route: 049

REACTIONS (2)
  - BURSITIS [None]
  - MUSCLE RUPTURE [None]
